FAERS Safety Report 7620317-7 (Version None)
Quarter: 2011Q3

REPORT INFORMATION
  Report Type: 
  Country: None (occurrence: None)
  Receive Date: 20110719
  Receipt Date: 20110707
  Transmission Date: 20111222
  Serious: Yes (Hospitalization)
  Sender: FDA-Public Use
  Company Number: PHHY2011FR61451

PATIENT
  Age: 28 Year
  Sex: Female

DRUGS (4)
  1. AMOXICILLIN [Suspect]
     Dosage: UNK
     Route: 048
     Dates: start: 20091226, end: 20091230
  2. ACETAMINOPHEN [Suspect]
     Dosage: UNK
     Route: 048
     Dates: start: 20091226
  3. ACETAMINOPHEN [Suspect]
     Dosage: UNK
     Route: 042
     Dates: start: 20091226
  4. SYNTOCINON [Suspect]
     Dosage: 2 DF, QD
     Route: 042
     Dates: start: 20091226, end: 20091226

REACTIONS (10)
  - RASH MACULO-PAPULAR [None]
  - ERYTHEMA [None]
  - FACE OEDEMA [None]
  - EOSINOPHILIA [None]
  - DERMATITIS EXFOLIATIVE [None]
  - EYELID OEDEMA [None]
  - RASH VESICULAR [None]
  - HYPERTHERMIA [None]
  - LYMPHADENOPATHY [None]
  - BLISTER [None]
